FAERS Safety Report 23772370 (Version 1)
Quarter: 2024Q2

REPORT INFORMATION
  Report Type: Spontaneous
  Country: DK (occurrence: DK)
  Receive Date: 20240423
  Receipt Date: 20240423
  Transmission Date: 20240716
  Serious: Yes (Hospitalization, Other)
  Sender: FDA-Public Use
  Company Number: DK-CHEPLA-2024004871

PATIENT
  Age: 49 Year
  Sex: Male

DRUGS (5)
  1. VALGANCICLOVIR [Suspect]
     Active Substance: VALGANCICLOVIR
     Indication: Cytomegalovirus infection
     Dosage: 900 MG ? 2 DAYS.??DAILY DOSE: 1800 MILLIGRAM
     Route: 048
  2. TACROLIMUS [Concomitant]
     Active Substance: TACROLIMUS
     Indication: Cytomegalovirus infection
  3. TACROLIMUS [Concomitant]
     Active Substance: TACROLIMUS
     Indication: Cytomegalovirus infection
     Dosage: DOSE WAS REDUCED.
  4. MYCOPHENOLATE MOFETIL [Concomitant]
     Active Substance: MYCOPHENOLATE MOFETIL
     Indication: Cytomegalovirus infection
  5. PREDNISOLONE [Concomitant]
     Active Substance: PREDNISOLONE
     Indication: Cytomegalovirus infection

REACTIONS (1)
  - Toxic epidermal necrolysis [Recovered/Resolved]
